FAERS Safety Report 15835032 (Version 2)
Quarter: 2019Q2

REPORT INFORMATION
  Report Type: Spontaneous
  Country: US (occurrence: US)
  Receive Date: 20190116
  Receipt Date: 20190416
  Transmission Date: 20190711
  Serious: No
  Sender: FDA-Public Use
  Company Number: US-CHILTERN-US-2018-000283

PATIENT
  Sex: Female

DRUGS (2)
  1. RHOPRESSA [Suspect]
     Active Substance: NETARSUDIL MESYLATE
     Indication: GLAUCOMA
  2. RHOPRESSA [Suspect]
     Active Substance: NETARSUDIL MESYLATE
     Indication: INTRACRANIAL PRESSURE INCREASED
     Dosage: 2 GTT, UNK
     Route: 047
     Dates: start: 20181212

REACTIONS (2)
  - Conjunctival hyperaemia [Not Recovered/Not Resolved]
  - Chalazion [Unknown]

NARRATIVE: CASE EVENT DATE: 20181213
